FAERS Safety Report 9564165 (Version 1)
Quarter: 2013Q3

REPORT INFORMATION
  Report Type: Spontaneous
  Country: US (occurrence: US)
  Receive Date: 20130930
  Receipt Date: 20130930
  Transmission Date: 20140515
  Serious: No
  Sender: FDA-Public Use
  Company Number: US-009507513-1309USA013853

PATIENT
  Age: 41 Year
  Sex: 0
  Weight: 58.96 kg

DRUGS (1)
  1. IMPLANON [Suspect]
     Indication: CONTRACEPTION
     Dosage: UNK
     Route: 059
     Dates: start: 200808

REACTIONS (4)
  - Dizziness [Unknown]
  - Malaise [Unknown]
  - Headache [Unknown]
  - Incorrect drug administration duration [Unknown]
